FAERS Safety Report 8401286-9 (Version None)
Quarter: 2012Q2

REPORT INFORMATION
  Report Type: 
  Country: None (occurrence: None)
  Receive Date: 20120529
  Receipt Date: 20120518
  Transmission Date: 20120825
  Serious: Yes (Hospitalization)
  Sender: FDA-Public Use
  Company Number: ACO_30160_2012

PATIENT
  Age: 55 Year
  Sex: Male

DRUGS (4)
  1. INSULIN (INSULIN) [Concomitant]
  2. AMPYRA [Suspect]
     Indication: PRODUCT USED FOR UNKNOWN INDICATION
     Dosage: 10 MG, BID
     Dates: start: 20110201
  3. ZOCOR [Concomitant]
  4. BETASERON [Concomitant]

REACTIONS (2)
  - SKIN INJURY [None]
  - OSTEOMYELITIS [None]
